FAERS Safety Report 4341009-6 (Version None)
Quarter: 2004Q2

REPORT INFORMATION
  Report Type: 
  Country: None (occurrence: None)
  Receive Date: 20040413
  Receipt Date: 20040330
  Transmission Date: 20050107
  Serious: Yes (Other)
  Sender: FDA-Public Use
  Company Number: ZANA001161

PATIENT
  Age: 24 Year
  Sex: Male

DRUGS (2)
  1. TIZANIDINE HCL [Suspect]
     Indication: SPINAL DISORDER
     Dosage: 2 DF/DAY ORAL
     Route: 048
     Dates: start: 20040324
  2. VIOXX [Suspect]
     Indication: SPINAL DISORDER
     Dosage: 25 MG/DAY ORAL
     Route: 048
     Dates: start: 20040324

REACTIONS (5)
  - ABDOMINAL PAIN [None]
  - BODY TEMPERATURE INCREASED [None]
  - DERMATITIS BULLOUS [None]
  - EXANTHEM [None]
  - RASH MACULAR [None]
